FAERS Safety Report 8332901-6 (Version None)
Quarter: 2012Q2

REPORT INFORMATION
  Report Type: 
  Country: None (occurrence: None)
  Receive Date: 20120503
  Receipt Date: 20120425
  Transmission Date: 20120825
  Serious: Yes (Other)
  Sender: FDA-Public Use
  Company Number: JP-VERTEX PHARMACEUTICALS INC.-AE-2012-004427

PATIENT
  Age: 67 Year
  Sex: Female

DRUGS (9)
  1. PEGINTERFERON ALFA-2A [Concomitant]
     Indication: HEPATITIS C
     Route: 051
     Dates: start: 20120125
  2. RIBAVIRIN [Concomitant]
     Route: 048
     Dates: start: 20120310, end: 20120413
  3. RECALBON [Concomitant]
     Route: 048
  4. TELAVIC (TELAPREVIR) [Suspect]
     Indication: HEPATITIS C
     Route: 048
     Dates: start: 20120125, end: 20120126
  5. LANSOPRAZOLE [Concomitant]
     Route: 048
     Dates: start: 20120310, end: 20120424
  6. RIBAVIRIN [Concomitant]
     Route: 048
     Dates: start: 20120414
  7. OPAPROSMON [Concomitant]
     Route: 048
  8. TELAVIC (TELAPREVIR) [Suspect]
     Route: 048
     Dates: start: 20120127, end: 20120417
  9. RIBAVIRIN [Concomitant]
     Indication: HEPATITIS C
     Route: 048
     Dates: start: 20120125, end: 20120309

REACTIONS (1)
  - ERYTHEMA MULTIFORME [None]
